FAERS Safety Report 8104365 (Version 5)
Quarter: 2013Q4

REPORT INFORMATION
  Report Type: Spontaneous
  Country: US (occurrence: US)
  Receive Date: 20110824
  Receipt Date: 20131202
  Transmission Date: 20140711
  Serious: Yes (Hospitalization)
  Sender: FDA-Public Use
  Company Number: US-GLAXOSMITHKLINE-A0915715A

PATIENT
  Age: 76 Year
  Sex: Male
  Weight: 78.6 kg

DRUGS (3)
  1. AVANDAMET [Suspect]
     Indication: DIABETES MELLITUS
     Route: 048
     Dates: start: 20030814, end: 200503
  2. AVANDIA [Suspect]
     Indication: DIABETES MELLITUS
     Dosage: 8MG PER DAY
     Route: 048
     Dates: start: 200504, end: 200712
  3. METFORMIN [Concomitant]

REACTIONS (4)
  - Myocardial infarction [Recovering/Resolving]
  - Ischaemic cardiomyopathy [Unknown]
  - Coronary artery disease [Unknown]
  - Arteriosclerosis [Unknown]
